FAERS Safety Report 4357335-0 (Version None)
Quarter: 2004Q2

REPORT INFORMATION
  Report Type: 
  Country: None (occurrence: None)
  Receive Date: 20040506
  Receipt Date: 20040421
  Transmission Date: 20050107
  Serious: Yes (Other)
  Sender: FDA-Public Use
  Company Number: S04-USA-02272-01

PATIENT
  Age: 85 Year
  Sex: Female

DRUGS (3)
  1. NAMENDA [Suspect]
     Dates: start: 20040301, end: 20040301
  2. REMINYL [Concomitant]
  3. OTHER MEDICATIONS [Concomitant]

REACTIONS (1)
  - NEUROLEPTIC MALIGNANT SYNDROME [None]
